FAERS Safety Report 14789228 (Version 2)
Quarter: 2018Q2

REPORT INFORMATION
  Report Type: Spontaneous
  Country: CA (occurrence: US)
  Receive Date: 20180423
  Receipt Date: 20180427
  Transmission Date: 20180711
  Serious: Yes (Other)
  Sender: FDA-Public Use
  Company Number: CA-009507513-1804USA006938

PATIENT
  Sex: Male

DRUGS (1)
  1. TEMODAR [Suspect]
     Active Substance: TEMOZOLOMIDE
     Indication: BRAIN NEOPLASM MALIGNANT
     Dosage: UNK
     Route: 048
     Dates: start: 20170412

REACTIONS (4)
  - Metastases to spine [Not Recovered/Not Resolved]
  - Nausea [Unknown]
  - Metastases to spinal cord [Not Recovered/Not Resolved]
  - Vomiting [Unknown]
